FAERS Safety Report 8131248-0 (Version None)
Quarter: 2012Q1

REPORT INFORMATION
  Report Type: 
  Country: None (occurrence: None)
  Receive Date: 20120103
  Receipt Date: 20110918
  Transmission Date: 20120608
  Serious: No
  Sender: FDA-Public Use
  Company Number: AE-2011-001650

PATIENT
  Age: 51 Year
  Sex: Male
  Weight: 83.9154 kg

DRUGS (5)
  1. INCIVEK [Suspect]
     Dosage: (3 IN 1 D),ORAL
     Route: 048
     Dates: start: 20110909
  2. RIBAVIRIN [Concomitant]
  3. WELLBUTRIN [Concomitant]
  4. ZYRTEC [Concomitant]
  5. PEGINTERFERON (PEGINTERFERON ALFA-2A) [Concomitant]

REACTIONS (2)
  - ANAL HAEMORRHAGE [None]
  - ANAL PRURITUS [None]
